FAERS Safety Report 25580705 (Version 1)
Quarter: 2025Q3

REPORT INFORMATION
  Report Type: Spontaneous
  Country: US (occurrence: US)
  Receive Date: 20250718
  Receipt Date: 20250718
  Transmission Date: 20251021
  Serious: No
  Sender: NOVO NORDISK
  Company Number: US-NOVOPROD-1429887

PATIENT
  Sex: Female

DRUGS (1)
  1. WEGOVY [Suspect]
     Active Substance: SEMAGLUTIDE
     Indication: Product used for unknown indication
     Dosage: 2.4 MG, QW(ON SUNDAYS)
     Dates: start: 2023

REACTIONS (4)
  - Upper respiratory tract infection [Unknown]
  - Hunger [Unknown]
  - Musculoskeletal chest pain [Unknown]
  - Illness [Unknown]
